FAERS Safety Report 24825526 (Version 1)
Quarter: 2025Q1

REPORT INFORMATION
  Report Type: Spontaneous
  Country: CN (occurrence: CN)
  Receive Date: 20250109
  Receipt Date: 20250109
  Transmission Date: 20250408
  Serious: Yes (Other)
  Sender: BRACCO
  Company Number: CN-BRACCO-2024CN08320

PATIENT
  Age: 39 Year
  Sex: Female

DRUGS (3)
  1. SULFUR HEXAFLUORIDE [Suspect]
     Active Substance: SULFUR HEXAFLUORIDE
     Indication: Ultrasound lymph nodes
     Route: 042
     Dates: start: 20241231, end: 20241231
  2. SULFUR HEXAFLUORIDE [Suspect]
     Active Substance: SULFUR HEXAFLUORIDE
     Indication: Ultrasound lymph nodes
     Route: 042
     Dates: start: 20241231, end: 20241231
  3. SULFUR HEXAFLUORIDE [Suspect]
     Active Substance: SULFUR HEXAFLUORIDE
     Indication: Ultrasound lymph nodes
     Route: 042
     Dates: start: 20241231, end: 20241231

REACTIONS (5)
  - Hypotension [Recovered/Resolved]
  - Oxygen saturation decreased [Recovered/Resolved]
  - Abdominal pain upper [Recovered/Resolved]
  - Hyperhidrosis [Recovered/Resolved]
  - Asthenia [Recovered/Resolved]

NARRATIVE: CASE EVENT DATE: 20241231
